FAERS Safety Report 8678580 (Version 4)
Quarter: 2012Q4

REPORT INFORMATION
  Report Type: Report from Study
  Country: JP (occurrence: JP)
  Receive Date: 20120723
  Receipt Date: 20121218
  Transmission Date: 20130627
  Serious: Yes (Hospitalization)
  Sender: FDA-Public Use
  Company Number: JP-CELGENEUS-087-21660-12072031

PATIENT
  Age: 59 Year
  Sex: Female
  Weight: 50 kg

DRUGS (10)
  1. ABRAXANE [Suspect]
     Indication: BREAST CANCER METASTATIC
     Dosage: 375 Milligram
     Route: 041
     Dates: start: 20110208, end: 20111027
  2. ABRAXANE [Suspect]
     Dosage: 375 Milligram
     Route: 041
     Dates: start: 20111117, end: 20111215
  3. ABRAXANE [Suspect]
     Dosage: 375 Milligram
     Route: 041
     Dates: start: 20120119, end: 20120209
  4. ABRAXANE [Suspect]
     Dosage: 375 Milligram
     Route: 041
     Dates: start: 20120308
  5. LOBU [Concomitant]
     Indication: DRUG USE FOR UNKNOWN INDICATION
     Dosage: 180 Milligram
     Route: 048
     Dates: start: 20110303
  6. MUCOSTA [Concomitant]
     Indication: DRUG USE FOR UNKNOWN INDICATION
     Dosage: 300 Milligram
     Route: 065
     Dates: start: 20110303
  7. LYRICA [Concomitant]
     Indication: DRUG USE FOR UNKNOWN INDICATION
     Dosage: 150 Milligram
     Route: 048
     Dates: start: 20110825, end: 20111001
  8. LYRICA [Concomitant]
     Dosage: 50 Milligram
     Route: 048
     Dates: start: 20110915
  9. NEO-MINOPHAGEN C [Concomitant]
     Indication: DRUG USE FOR UNKNOWN INDICATION
     Dosage: 20 milliliter
     Route: 041
     Dates: start: 20110825, end: 20110825
  10. ALLEGRA [Concomitant]
     Indication: DRUG USE FOR UNKNOWN INDICATION
     Dosage: 60 Milligram
     Route: 048
     Dates: start: 20110825, end: 20110827

REACTIONS (2)
  - Herpes zoster [Recovered/Resolved]
  - Neutrophil count decreased [Recovered/Resolved]
